FAERS Safety Report 23745636 (Version 1)
Quarter: 2024Q2

REPORT INFORMATION
  Report Type: Report from Study
  Country: CA (occurrence: CA)
  Receive Date: 20240416
  Receipt Date: 20240416
  Transmission Date: 20240716
  Serious: Yes (Other)
  Sender: FDA-Public Use
  Company Number: CA-JAMP PHARMA CORPORATION-2023-JAM-CA-01066

PATIENT
  Age: 60 Year
  Sex: Female

DRUGS (1)
  1. SIMLANDI [Suspect]
     Active Substance: ADALIMUMAB-RYVK
     Indication: Rheumatoid arthritis
     Dosage: 40 MILLIGRAM, EVERY OTHER WEEK
     Route: 058

REACTIONS (7)
  - Rheumatoid arthritis [Not Recovered/Not Resolved]
  - Neck pain [Unknown]
  - Headache [Unknown]
  - Fatigue [Unknown]
  - Pruritus [Unknown]
  - Pain in extremity [Unknown]
  - Arthralgia [Unknown]
